FAERS Safety Report 15771371 (Version 5)
Quarter: 2020Q4

REPORT INFORMATION
  Report Type: Report from Study
  Country: GB (occurrence: GB)
  Receive Date: 20181228
  Receipt Date: 20201030
  Transmission Date: 20210113
  Serious: Yes (Other)
  Sender: FDA-Public Use
  Company Number: GB-JNJFOC-20181223708

PATIENT
  Age: 64 Year
  Sex: Male

DRUGS (15)
  1. STELARA [Suspect]
     Active Substance: USTEKINUMAB
     Indication: PSORIATIC ARTHROPATHY
     Route: 058
     Dates: start: 20180105
  2. BENDROFLUMETHIAZIDE [Concomitant]
     Active Substance: BENDROFLUMETHIAZIDE
     Dosage: DOSE EACH EVERY MORNING
     Route: 065
     Dates: start: 20190805
  3. TILDIEM LA [Concomitant]
     Active Substance: DILTIAZEM HYDROCHLORIDE
     Dosage: REPORTED AS TILDIEM LA 300 CAPSULES
     Route: 065
     Dates: start: 20190805
  4. PARACETAMOL [Concomitant]
     Active Substance: ACETAMINOPHEN
     Route: 065
     Dates: start: 20190805
  5. CANDESARTAN. [Concomitant]
     Active Substance: CANDESARTAN
     Route: 065
     Dates: start: 20190805
  6. RAMIPRIL. [Concomitant]
     Active Substance: RAMIPRIL
     Route: 065
  7. CANDESARTAN. [Concomitant]
     Active Substance: CANDESARTAN
     Route: 065
     Dates: start: 20190805
  8. LANSOPRAZOLE. [Concomitant]
     Active Substance: LANSOPRAZOLE
     Dosage: ONE TO BE TAKEN EACH MORNING.
     Route: 065
     Dates: start: 20190805
  9. GAVISCON ADVANCE ANISEED [Concomitant]
     Dosage: 10 MLS
     Route: 048
     Dates: start: 20190805
  10. CLINITAS HYDRATE [Concomitant]
     Dosage: AS DIRECTED, QUANTITY 10 GRAM?CLINTAS CARBOMER
     Route: 065
  11. LIDOCAINE. [Concomitant]
     Active Substance: LIDOCAINE
     Route: 065
     Dates: start: 20190805
  12. TILDIEM LA [Concomitant]
     Active Substance: DILTIAZEM HYDROCHLORIDE
     Dosage: REPORTED AS TILDIEM LA 200 CAPSULES
     Route: 065
     Dates: start: 20190805
  13. MOXONIDINE [Concomitant]
     Active Substance: MOXONIDINE
     Route: 065
     Dates: start: 20190805
  14. PREGABALIN. [Concomitant]
     Active Substance: PREGABALIN
     Route: 065
     Dates: start: 20190805
  15. LEFLUNOMIDE. [Concomitant]
     Active Substance: LEFLUNOMIDE
     Route: 065

REACTIONS (3)
  - Cellulitis [Unknown]
  - Psoriatic arthropathy [Unknown]
  - Sciatica [Unknown]

NARRATIVE: CASE EVENT DATE: 2018
